FAERS Safety Report 13655165 (Version 1)
Quarter: 2017Q2

REPORT INFORMATION
  Report Type: Spontaneous
  Country: US (occurrence: US)
  Receive Date: 20170614
  Receipt Date: 20170614
  Transmission Date: 20170830
  Serious: Yes (Hospitalization)
  Sender: FDA-Public Use
  Company Number: None

PATIENT
  Sex: Male
  Weight: 81.8 kg

DRUGS (1)
  1. LEDIPASVIR/SOFOSUVIR 90-400 MG GILEAD [Suspect]
     Active Substance: LEDIPASVIR\SOFOSBUVIR
     Indication: HEPATITIS C
     Route: 048
     Dates: start: 20170411

REACTIONS (5)
  - Fungal skin infection [None]
  - Liver function test increased [None]
  - Acute kidney injury [None]
  - Liver transplant rejection [None]
  - Cytopenia [None]

NARRATIVE: CASE EVENT DATE: 20170519
